FAERS Safety Report 10456465 (Version 3)
Quarter: 2014Q4

REPORT INFORMATION
  Report Type: Spontaneous
  Country: IT (occurrence: None)
  Receive Date: 20140912
  Receipt Date: 20141112
  Transmission Date: 20150528
  Serious: Yes (Hospitalization)
  Sender: FDA-Public Use
  Company Number: NL01PV14.37184

PATIENT
  Age: 77 Year
  Sex: Male

DRUGS (2)
  1. ZOLPIDEM [Suspect]
     Active Substance: ZOLPIDEM\ZOLPIDEM TARTRATE
     Indication: PRODUCT USED FOR UNKNOWN INDICATION
     Dosage: UNK, ORAL
     Route: 048
  2. LIOMETACEN /00003802/ [Suspect]
     Active Substance: INDOMETACIN MEGLUMINE
     Indication: OSTEOARTHRITIS
     Dosage: UNK, INTRAMUSCULAR
     Route: 030

REACTIONS (4)
  - Accidental poisoning [None]
  - Medication error [None]
  - Confusional state [None]
  - Accidental exposure to product [None]

NARRATIVE: CASE EVENT DATE: 20130330
